FAERS Safety Report 8533433-2 (Version None)
Quarter: 2012Q3

REPORT INFORMATION
  Report Type: 
  Country: None (occurrence: None)
  Receive Date: 20120724
  Receipt Date: 20120717
  Transmission Date: 20120928
  Serious: Yes (Hospitalization, Other)
  Sender: FDA-Public Use
  Company Number: US-JNJFOC-20120200414

PATIENT
  Sex: Male
  Weight: 87.09 kg

DRUGS (9)
  1. REMICADE [Suspect]
     Indication: CROHN'S DISEASE
     Route: 042
     Dates: start: 20110623
  2. REMICADE [Suspect]
     Route: 042
     Dates: start: 20101103, end: 20110502
  3. VITAMIN B-12 [Concomitant]
  4. NEXIUM [Concomitant]
  5. REMICADE [Suspect]
     Route: 042
     Dates: start: 20111201
  6. ANTIHISTAMINES [Concomitant]
     Indication: PREMEDICATION
  7. ANTI-DEPRESSANT (NOS) [Concomitant]
  8. REMICADE [Suspect]
     Route: 042
     Dates: start: 20020531, end: 20100908
  9. ACETAMINOPHEN [Concomitant]
     Indication: PREMEDICATION

REACTIONS (2)
  - CALCULUS URETERIC [None]
  - CHONDROSARCOMA [None]
